FAERS Safety Report 16040338 (Version 1)
Quarter: 2019Q1

REPORT INFORMATION
  Report Type: Spontaneous
  Country: CN (occurrence: CN)
  Receive Date: 20190306
  Receipt Date: 20190306
  Transmission Date: 20190418
  Serious: Yes (Other)
  Sender: FDA-Public Use
  Company Number: CN-PFIZER INC-2019092171

PATIENT
  Age: 39 Year
  Sex: Female

DRUGS (4)
  1. PHARMORUBICIN [Suspect]
     Active Substance: EPIRUBICIN
     Indication: INVASIVE DUCTAL BREAST CARCINOMA
     Dosage: 120 MG, EVERY 3 WEEKS (ONCE DAILY Q3W)
     Route: 042
     Dates: start: 20190102, end: 20190102
  2. SODIUM CHLORIDE. [Concomitant]
     Active Substance: SODIUM CHLORIDE
     Indication: VEHICLE SOLUTION USE
     Dosage: 50 ML, 1X/DAY
     Route: 042
     Dates: start: 20190102, end: 20190102
  3. STERILIZED WATER [Concomitant]
     Indication: VEHICLE SOLUTION USE
     Dosage: 50 ML, 1X/DAY
     Route: 042
     Dates: start: 20190102, end: 20190102
  4. CYCLOPHOSPHAMIDE. [Suspect]
     Active Substance: CYCLOPHOSPHAMIDE
     Indication: INVASIVE DUCTAL BREAST CARCINOMA
     Dosage: 800 MG, EVERY 3 WEEKS (ONCE DAILY Q3W)
     Route: 042
     Dates: start: 20190102, end: 20190102

REACTIONS (1)
  - Drug-induced liver injury [Unknown]

NARRATIVE: CASE EVENT DATE: 20190110
